FAERS Safety Report 13839822 (Version 1)
Quarter: 2017Q3

REPORT INFORMATION
  Report Type: Spontaneous
  Country: US (occurrence: US)
  Receive Date: 20170805
  Receipt Date: 20170805
  Transmission Date: 20171127
  Serious: No
  Sender: FDA-Public Use
  Company Number: None

PATIENT
  Age: 78 Year
  Sex: Female

DRUGS (12)
  1. DILTIAZEM. [Concomitant]
     Active Substance: DILTIAZEM
  2. SEVELAMER [Concomitant]
     Active Substance: SEVELAMER
  3. INSULIN ASPART [Suspect]
     Active Substance: INSULIN ASPART
     Dosage: 6 UNITS 3 TIMES PER DAY SC
     Route: 058
     Dates: start: 20170120, end: 20170122
  4. ATORVASTATIN [Concomitant]
     Active Substance: ATORVASTATIN
  5. INSULIN GLARGINE [Concomitant]
     Active Substance: INSULIN GLARGINE
  6. CARVEDILOL. [Concomitant]
     Active Substance: CARVEDILOL
  7. TIMOLOL OPTHALMIC [Concomitant]
  8. BISACODYL. [Concomitant]
     Active Substance: BISACODYL
  9. LISINOPRIL. [Concomitant]
     Active Substance: LISINOPRIL
  10. POLYETHYLENE GLYCOL 3350. [Concomitant]
     Active Substance: POLYETHYLENE GLYCOL 3350
  11. SENNA [Concomitant]
     Active Substance: SENNA LEAF\SENNOSIDES\SENNOSIDES A AND B
  12. WARFARIN [Concomitant]
     Active Substance: WARFARIN

REACTIONS (8)
  - Facial paralysis [None]
  - Blood glucose increased [None]
  - Dysarthria [None]
  - Blood glucose decreased [None]
  - Somnolence [None]
  - Cerebrovascular accident [None]
  - Blood pressure increased [None]
  - Heart rate decreased [None]

NARRATIVE: CASE EVENT DATE: 20170122
